FAERS Safety Report 19720522 (Version 1)
Quarter: 2021Q3

REPORT INFORMATION
  Report Type: Spontaneous
  Country: US (occurrence: US)
  Receive Date: 20210818
  Receipt Date: 20210818
  Transmission Date: 20211014
  Serious: No
  Sender: FDA-Public Use
  Company Number: US-AKCEA THERAPEUTICS, INC.-2021IS001431

PATIENT
  Age: 45 Year
  Sex: Female

DRUGS (12)
  1. ISSD (INTEGRATED SYRINGE SAFETY DEVICE [Suspect]
     Active Substance: DEVICE
  2. MEDOXOMIL [Concomitant]
     Route: 065
  3. TEGSEDI [Suspect]
     Active Substance: INOTERSEN SODIUM
     Indication: HEREDITARY NEUROPATHIC AMYLOIDOSIS
     Route: 058
  4. MAGNESIUM [Concomitant]
     Active Substance: MAGNESIUM
     Route: 065
  5. GLUCOSAMINE?CHONDROITIN /01430901/ [Concomitant]
     Route: 065
  6. NITRIC ACID [Concomitant]
     Active Substance: NITRIC ACID
     Route: 065
  7. OLMESARTAN [Concomitant]
     Active Substance: OLMESARTAN
     Route: 065
  8. LACTAID [Concomitant]
     Active Substance: LACTASE
     Route: 065
  9. ORIAHNN [Concomitant]
     Active Substance: ELAGOLIX SODIUM\ESTRADIOL\NORETHINDRONE
     Route: 065
  10. PROBIOTIC /06395501/ [Concomitant]
     Active Substance: BIFIDOBACTERIUM ANIMALIS LACTIS
     Route: 065
  11. ATENOLOL. [Concomitant]
     Active Substance: ATENOLOL
     Route: 065
  12. ASPIRIN /00002701/ [Concomitant]
     Active Substance: ASPIRIN
     Route: 065

REACTIONS (1)
  - Urinary tract infection [Unknown]
